FAERS Safety Report 7921774-9 (Version None)
Quarter: 2011Q4

REPORT INFORMATION
  Report Type: 
  Country: None (occurrence: None)
  Receive Date: 20111117
  Receipt Date: 20111110
  Transmission Date: 20120403
  Serious: Yes (Hospitalization)
  Sender: FDA-Public Use
  Company Number: FR-GLAXOSMITHKLINE-B0762231A

PATIENT
  Sex: Female
  Weight: 108 kg

DRUGS (1)
  1. ARIXTRA [Suspect]
     Indication: THROMBOPHLEBITIS
     Route: 058

REACTIONS (3)
  - MUSCLE NECROSIS [None]
  - ANAEMIA [None]
  - HAEMATOMA [None]
